FAERS Safety Report 5331090-X (Version None)
Quarter: 2007Q2

REPORT INFORMATION
  Report Type: 
  Country: None (occurrence: None)
  Receive Date: 20070522
  Receipt Date: 20070515
  Transmission Date: 20071010
  Serious: Yes (Hospitalization)
  Sender: FDA-Public Use
  Company Number: US-BRISTOL-MYERS SQUIBB COMPANY-13785704

PATIENT
  Age: 58 Year
  Sex: Male

DRUGS (15)
  1. TEQUIN [Suspect]
     Indication: RESPIRATORY TRACT INFECTION
     Dates: start: 20060221, end: 20060302
  2. AVANDIA [Concomitant]
  3. SYNTHROID [Concomitant]
  4. COUMADIN [Concomitant]
     Dosage: 6MG MONDAY - SATURDAY, 3MG SUNDAY
  5. BROMPHEN+PSEUDOEPHED+DEXTROMETHORPHAN [Concomitant]
  6. ROBAXISAL [Concomitant]
  7. LASIX [Concomitant]
  8. INDOCIN [Concomitant]
  9. NABUMETONE [Concomitant]
  10. DARVOCET-N 100 [Concomitant]
  11. AMBIEN [Concomitant]
  12. XANAX [Concomitant]
  13. ZITHROMAX [Concomitant]
  14. TYLENOL [Concomitant]
  15. ASMANEX TWISTHALER [Concomitant]
     Route: 055

REACTIONS (1)
  - HYPERGLYCAEMIA [None]
